FAERS Safety Report 8332856-4 (Version None)
Quarter: 2012Q1

REPORT INFORMATION
  Report Type: 
  Country: None (occurrence: None)
  Receive Date: 20120327
  Receipt Date: 20100902
  Transmission Date: 20120608
  Serious: Yes (Other)
  Sender: FDA-Public Use
  Company Number: PHEH2009US10136

PATIENT
  Age: 66 Year
  Sex: Female

DRUGS (6)
  1. GLEEVEC [Suspect]
     Indication: CHRONIC MYELOID LEUKAEMIA
     Dosage: 400 MG, ORAL
     Route: 048
     Dates: start: 20090715, end: 20100301
  2. DIOVAN [Concomitant]
  3. NIFEDIPINE [Concomitant]
  4. HYDROCHLOROTHIAZIDE [Concomitant]
  5. FUROSEMIDE [Concomitant]
  6. LABETALOL HCL [Concomitant]

REACTIONS (10)
  - OEDEMA PERIPHERAL [None]
  - DYSPEPSIA [None]
  - PALLOR [None]
  - INSOMNIA [None]
  - DECREASED APPETITE [None]
  - ABDOMINAL DISTENSION [None]
  - CONSTIPATION [None]
  - SKIN DISCOLOURATION [None]
  - MUSCLE SPASMS [None]
  - DEPRESSION [None]
